FAERS Safety Report 5327750-7 (Version None)
Quarter: 2007Q1

REPORT INFORMATION
  Report Type: 
  Country: None (occurrence: None)
  Receive Date: 20070226
  Receipt Date: 20061114
  Transmission Date: 20070707
  Serious: Yes (Other)
  Sender: FDA-Public Use
  Company Number: DSA_29002_2006

PATIENT
  Sex: Female

DRUGS (2)
  1. VASOTEC [Suspect]
     Dosage: DF  PO
     Route: 048
  2. ROFECOXIB [Concomitant]

REACTIONS (2)
  - ANGIOEDEMA [None]
  - DRUG HYPERSENSITIVITY [None]
